FAERS Safety Report 7352745-1 (Version None)
Quarter: 2011Q1

REPORT INFORMATION
  Report Type: 
  Country: None (occurrence: None)
  Receive Date: 20110302
  Receipt Date: 20100506
  Transmission Date: 20110831
  Serious: Yes (Hospitalization)
  Sender: FDA-Public Use
  Company Number: 303235

PATIENT
  Age: 56 Year
  Sex: Male
  Weight: 107.5 kg

DRUGS (6)
  1. LISINOPRIL [Concomitant]
  2. NOVOLIN 70/30 [Suspect]
     Indication: INSULIN-REQUIRING TYPE 2 DIABETES MELLITUS
     Dosage: 80 IU, QD, SUBCUTANEOUS, 62 U, IN THE AM, SUBCUTANEOUS, 50 U, IN THE PM, SUBCUTANEOUS
     Route: 058
     Dates: start: 20100101
  3. NOVOLIN 70/30 [Suspect]
     Indication: INSULIN-REQUIRING TYPE 2 DIABETES MELLITUS
     Dosage: 80 IU, QD, SUBCUTANEOUS, 62 U, IN THE AM, SUBCUTANEOUS, 50 U, IN THE PM, SUBCUTANEOUS
     Route: 058
     Dates: start: 20100101
  4. NOVOLIN 70/30 [Suspect]
     Indication: INSULIN-REQUIRING TYPE 2 DIABETES MELLITUS
     Dosage: 80 IU, QD, SUBCUTANEOUS, 62 U, IN THE AM, SUBCUTANEOUS, 50 U, IN THE PM, SUBCUTANEOUS
     Route: 058
     Dates: start: 19980101, end: 20100101
  5. ZOCOR [Concomitant]
  6. ASPIRIN [Concomitant]

REACTIONS (5)
  - HEADACHE [None]
  - EYE PAIN [None]
  - BLOOD GLUCOSE FLUCTUATION [None]
  - BLOOD GLUCOSE INCREASED [None]
  - VISION BLURRED [None]
